FAERS Safety Report 6233225-3 (Version None)
Quarter: 2009Q2

REPORT INFORMATION
  Report Type: 
  Country: None (occurrence: None)
  Receive Date: 20090617
  Receipt Date: 20090609
  Transmission Date: 20091009
  Serious: Yes (Hospitalization)
  Sender: FDA-Public Use
  Company Number: PHEH2009US05993

PATIENT
  Sex: Female

DRUGS (12)
  1. TASIGNA [Suspect]
     Indication: LEUKAEMIA
     Dosage: 400 MG, BID
     Route: 048
     Dates: start: 20080901, end: 20090501
  2. TYLENOL (CAPLET) [Concomitant]
  3. MULTIVITAMIN ^LAPPE^ [Concomitant]
  4. LUTEIN [Concomitant]
  5. ZINC [Concomitant]
  6. MINOXIDIL [Concomitant]
  7. IMDUR [Concomitant]
  8. CLONIDINE [Concomitant]
  9. LISINOPRIL [Concomitant]
  10. DIFLUCAN [Concomitant]
  11. ESTRADIOL [Concomitant]
  12. METOPROLOL SUCCINATE [Concomitant]

REACTIONS (1)
  - MEDICATION ERROR [None]
